FAERS Safety Report 21775397 (Version 2)
Quarter: 2023Q1

REPORT INFORMATION
  Report Type: Report from Study
  Country: US (occurrence: US)
  Receive Date: 20221225
  Receipt Date: 20230202
  Transmission Date: 20230417
  Serious: No
  Sender: FDA-Public Use
  Company Number: US-ABBVIE-4248258

PATIENT
  Sex: Male

DRUGS (1)
  1. IMBRUVICA [Suspect]
     Active Substance: IBRUTINIB
     Indication: Chronic lymphocytic leukaemia
     Dosage: FIRST ADMIN DATE: OCT 2022
     Route: 048

REACTIONS (4)
  - Increased tendency to bruise [Unknown]
  - Fatigue [Unknown]
  - Contusion [Unknown]
  - Eye contusion [Unknown]
